FAERS Safety Report 8840921 (Version 2)
Quarter: 2015Q3

REPORT INFORMATION
  Report Type: Report from Study
  Country: US (occurrence: US)
  Receive Date: 20121015
  Receipt Date: 20150812
  Transmission Date: 20151125
  Serious: Yes (Other)
  Sender: FDA-Public Use
  Company Number: US-ROCHE-1130560

PATIENT
  Sex: Female

DRUGS (3)
  1. PROTROPIN [Suspect]
     Active Substance: SOMATREM
     Dosage: 0.32 CC
     Route: 058
  2. PROTROPIN [Suspect]
     Active Substance: SOMATREM
     Indication: DWARFISM
     Dosage: 0.32 CC
     Route: 058
  3. NUTROPIN [Suspect]
     Active Substance: SOMATROPIN
     Indication: DWARFISM
     Route: 065

REACTIONS (1)
  - Crohn^s disease [Unknown]
